FAERS Safety Report 4862123-2 (Version None)
Quarter: 2005Q4

REPORT INFORMATION
  Report Type: 
  Country: None (occurrence: None)
  Receive Date: 20051221
  Receipt Date: 20051209
  Transmission Date: 20060501
  Serious: Yes (Other)
  Sender: FDA-Public Use
  Company Number: CA-BRISTOL-MYERS SQUIBB COMPANY-13220314

PATIENT
  Age: 82 Year
  Sex: Female

DRUGS (7)
  1. TEQUIN [Suspect]
  2. DEXTROSE 5% [Suspect]
     Route: 042
  3. ALLOPURINOL [Concomitant]
     Route: 048
  4. FERROUS GLUCONATE [Concomitant]
     Route: 048
  5. FUROSEMIDE [Concomitant]
     Route: 042
  6. GLYBURIDE [Concomitant]
     Route: 048
  7. METFORMIN HCL [Concomitant]
     Route: 048

REACTIONS (5)
  - COLD SWEAT [None]
  - COMA [None]
  - DECREASED APPETITE [None]
  - HYPOGLYCAEMIA [None]
  - NAUSEA [None]
